FAERS Safety Report 13137029 (Version 1)
Quarter: 2017Q1

REPORT INFORMATION
  Report Type: Other
  Country: DE (occurrence: DE)
  Receive Date: 20170123
  Receipt Date: 20170123
  Transmission Date: 20170428
  Serious: Yes (Other)
  Sender: FDA-Public Use
  Company Number: DE-LUPIN PHARMACEUTICALS INC.-E2B_00007130

PATIENT
  Age: 73 Year
  Sex: Female
  Weight: 74 kg

DRUGS (1)
  1. SIMVASTATIN. [Suspect]
     Active Substance: SIMVASTATIN
     Indication: BLOOD CHOLESTEROL INCREASED
     Route: 048
     Dates: start: 2009, end: 201611

REACTIONS (11)
  - Muscle spasms [Unknown]
  - Muscle spasms [Unknown]
  - Blood creatine phosphokinase increased [Unknown]
  - Fracture [Unknown]
  - Gait disturbance [Unknown]
  - Muscular weakness [Unknown]
  - Mobility decreased [Unknown]
  - Fall [Unknown]
  - Suffocation feeling [Unknown]
  - Balance disorder [Unknown]
  - Respiratory distress [Unknown]

NARRATIVE: CASE EVENT DATE: 201003
